FAERS Safety Report 5501858-5 (Version None)
Quarter: 2007Q4

REPORT INFORMATION
  Report Type: 
  Country: None (occurrence: None)
  Receive Date: 20071030
  Receipt Date: 20070702
  Transmission Date: 20080405
  Serious: No
  Sender: FDA-Public Use
  Company Number: A0650247A

PATIENT
  Age: 69 Year
  Sex: Female

DRUGS (2)
  1. SEREVENT [Suspect]
     Indication: ASTHMA
     Dosage: 50MCG TWICE PER DAY
     Route: 055
  2. PULMICORT [Concomitant]

REACTIONS (2)
  - DRUG INEFFECTIVE [None]
  - PHARMACEUTICAL PRODUCT COMPLAINT [None]
